FAERS Safety Report 14466487 (Version 1)
Quarter: 2018Q1

REPORT INFORMATION
  Report Type: Spontaneous
  Country: US (occurrence: US)
  Receive Date: 20180130
  Receipt Date: 20180130
  Transmission Date: 20180509
  Serious: No
  Sender: FDA-Public Use
  Company Number: None

PATIENT
  Age: 56 Year
  Sex: Male

DRUGS (1)
  1. HUMIRA [Suspect]
     Active Substance: ADALIMUMAB
     Indication: RHEUMATOID ARTHRITIS
     Route: 058
     Dates: start: 20171228, end: 20180125

REACTIONS (4)
  - Myalgia [None]
  - Arthralgia [None]
  - Pain in extremity [None]
  - Fatigue [None]

NARRATIVE: CASE EVENT DATE: 20180125
